FAERS Safety Report 9936954 (Version 1)
Quarter: 2014Q1

REPORT INFORMATION
  Report Type: Spontaneous
  Country: US (occurrence: None)
  Receive Date: 20140115
  Receipt Date: 20140115
  Transmission Date: 20141002
  Serious: No
  Sender: FDA-Public Use
  Company Number: 2013US002578

PATIENT
  Age: 69 Year
  Sex: Female
  Weight: 94 kg

DRUGS (8)
  1. ICLUSIG (PONATINIB) TABLET, 45MG [Suspect]
     Indication: CHRONIC MYELOID LEUKAEMIA
     Route: 048
     Dates: start: 20130821
  2. VICTOZA (LIRAGLUTIDE) [Concomitant]
  3. GLIPIZIDE (GLIPIZIDE) [Concomitant]
  4. FENOFIBRATE (FENOFIBRATE) (FENOFIBRATE) [Concomitant]
  5. PRAVASTATIN (PRAVASTATIN) [Suspect]
  6. ZOLOFT (SERTRALINE HYDROCHLORIDE) [Concomitant]
  7. AMLODIPINE (AMLODIPINE) [Concomitant]
  8. ASA (ASA) [Concomitant]

REACTIONS (5)
  - Hyperglycaemia [None]
  - Weight decreased [None]
  - Rash [None]
  - Fatigue [None]
  - Constipation [None]
